FAERS Safety Report 5366828-9 (Version None)
Quarter: 2007Q2

REPORT INFORMATION
  Report Type: 
  Country: None (occurrence: None)
  Receive Date: 20070622
  Receipt Date: 20070329
  Transmission Date: 20071010
  Serious: No
  Sender: FDA-Public Use
  Company Number: A0645212A

PATIENT
  Sex: Female

DRUGS (1)
  1. ZYBAN [Suspect]
     Dosage: 150MG UNKNOWN
     Route: 048

REACTIONS (2)
  - DRUG INEFFECTIVE [None]
  - NERVOUSNESS [None]
